FAERS Safety Report 18146276 (Version 1)
Quarter: 2020Q3

REPORT INFORMATION
  Report Type: Other
  Country: IT (occurrence: IT)
  Receive Date: 20200813
  Receipt Date: 20200813
  Transmission Date: 20201103
  Serious: Yes (Hospitalization)
  Sender: FDA-Public Use
  Company Number: IT-MACLEODS PHARMACEUTICALS US LTD-MAC2020027653

PATIENT

DRUGS (10)
  1. LAEVOLAC [Interacting]
     Active Substance: LACTULOSE
     Indication: CONSTIPATION
     Dosage: 2 DOSAGE FORM, PRN
     Route: 048
     Dates: start: 20200618, end: 20200702
  2. FOSFOMYCIN [Interacting]
     Active Substance: FOSFOMYCIN
     Indication: CYSTITIS
     Dosage: 3 MILLIGRAM, QD
     Route: 048
     Dates: start: 20200622, end: 20200623
  3. VENLAFAXINE [Interacting]
     Active Substance: VENLAFAXINE HYDROCHLORIDE
     Indication: MAJOR DEPRESSION
     Dosage: 225 MILLIGRAM, QD, TABLET
     Route: 048
     Dates: start: 20200617, end: 20200629
  4. REAGILA 1.5 MG HARD CAPSULES [Interacting]
     Active Substance: CARIPRAZINE
     Indication: MAJOR DEPRESSION
     Dosage: 3 MILLIGRAM, QD, TABLET
     Route: 048
     Dates: start: 20191210, end: 20200702
  5. DONAMET [Interacting]
     Active Substance: ADEMETIONINE
     Indication: MAJOR DEPRESSION
     Dosage: 500 MILLIGRAM, QD, INTRAVENOUS DRIP
     Route: 017
     Dates: start: 20200619, end: 20200627
  6. ESCITALOPRAM OXALATE. [Concomitant]
     Active Substance: ESCITALOPRAM OXALATE
     Indication: MAJOR DEPRESSION
     Dosage: 20 MILLIGRAM, QD
     Route: 048
     Dates: start: 20200524, end: 20200624
  7. DELORAZEPAM [Interacting]
     Active Substance: DELORAZEPAM
     Indication: ANXIETY
     Dosage: 6 MILLIGRAM, QD
     Route: 048
     Dates: start: 20200524, end: 20200607
  8. PANTOPRAZOLE 40 MG TABLET [Suspect]
     Active Substance: PANTOPRAZOLE
     Indication: GASTROOESOPHAGEAL REFLUX DISEASE
     Dosage: 40 MILLIGRAM, QD
     Route: 048
     Dates: start: 20200617, end: 20200703
  9. TALOFEN [Interacting]
     Active Substance: PROMAZINE HYDROCHLORIDE
     Indication: NERVOUSNESS
     Dosage: 35 DROP, QD
     Route: 048
     Dates: start: 20200524, end: 20200707
  10. BISOPROLOL FUMARATE. [Concomitant]
     Active Substance: BISOPROLOL FUMARATE
     Indication: SINUS TACHYCARDIA
     Dosage: 1.25 MILLIGRAM, QD
     Route: 048
     Dates: start: 20200524

REACTIONS (5)
  - Erythema nodosum [Recovered/Resolved]
  - Skin abrasion [Recovered/Resolved]
  - Pruritus [Recovered/Resolved]
  - Mechanical urticaria [Recovered/Resolved]
  - Drug interaction [Unknown]

NARRATIVE: CASE EVENT DATE: 20200626
